FAERS Safety Report 13365820 (Version 1)
Quarter: 2017Q1

REPORT INFORMATION
  Report Type: Spontaneous
  Country: US (occurrence: US)
  Receive Date: 20170323
  Receipt Date: 20170323
  Transmission Date: 20170429
  Serious: No
  Sender: FDA-Public Use
  Company Number: US-APOTEX-2017AP005007

PATIENT
  Age: 55 Year
  Sex: Male
  Weight: 83.9 kg

DRUGS (1)
  1. CLARISPRAY NASAL ALLERGY [Suspect]
     Active Substance: FLUTICASONE PROPIONATE
     Indication: UPPER RESPIRATORY TRACT INFECTION
     Dosage: UNK, 60 METERED DOSE, 2 SPRAYS EACH NOSTRIL
     Route: 045
     Dates: start: 20161227

REACTIONS (3)
  - Off label use [Not Recovered/Not Resolved]
  - Infection [Not Recovered/Not Resolved]
  - Eye discharge [Not Recovered/Not Resolved]
